FAERS Safety Report 20509924 (Version 1)
Quarter: 2022Q1

REPORT INFORMATION
  Report Type: Spontaneous
  Country: US (occurrence: US)
  Receive Date: 20220224
  Receipt Date: 20220224
  Transmission Date: 20220423
  Serious: Yes (Other)
  Sender: FDA-Public Use
  Company Number: US-CELGENE-USA-20220206776

PATIENT
  Sex: Female
  Weight: 45.400 kg

DRUGS (1)
  1. REVLIMID [Suspect]
     Active Substance: LENALIDOMIDE
     Indication: Refractory cytopenia with unilineage dysplasia
     Dosage: 2.5 MILLIGRAM
     Route: 048
     Dates: start: 20220120

REACTIONS (1)
  - Haemoglobin decreased [Unknown]
